FAERS Safety Report 13983825 (Version 2)
Quarter: 2017Q4

REPORT INFORMATION
  Report Type: Spontaneous
  Country: US (occurrence: US)
  Receive Date: 20170918
  Receipt Date: 20171027
  Transmission Date: 20180321
  Serious: No
  Sender: FDA-Public Use
  Company Number: US-ASTRAZENECA-2017SE94157

PATIENT
  Age: 22782 Day
  Sex: Female
  Weight: 86.2 kg

DRUGS (7)
  1. IRON [Concomitant]
     Active Substance: IRON
     Indication: RESTLESS LEGS SYNDROME
     Route: 048
     Dates: start: 201608
  2. GLIMEPIRIDE. [Concomitant]
     Active Substance: GLIMEPIRIDE
     Indication: TYPE 2 DIABETES MELLITUS
     Route: 048
     Dates: start: 201505
  3. BYDUREON [Suspect]
     Active Substance: EXENATIDE
     Indication: TYPE 2 DIABETES MELLITUS
     Route: 058
     Dates: start: 20170731
  4. METFORMIN HYDROCHLORIDE. [Concomitant]
     Active Substance: METFORMIN HYDROCHLORIDE
     Indication: TYPE 2 DIABETES MELLITUS
     Route: 048
     Dates: start: 2013
  5. KLOR-CON [Concomitant]
     Active Substance: POTASSIUM CHLORIDE
     Indication: HYPOKALAEMIA
     Route: 048
     Dates: start: 20170904
  6. MIGRANAL [Concomitant]
     Active Substance: DIHYDROERGOTAMINE MESYLATE
     Indication: MIGRAINE
     Dosage: 4.0MG AS REQUIRED
     Route: 045
     Dates: start: 2014
  7. FUROSEMIDE. [Concomitant]
     Active Substance: FUROSEMIDE
     Indication: FLUID RETENTION
     Route: 048
     Dates: start: 20170904

REACTIONS (5)
  - Injection site mass [Recovering/Resolving]
  - Injection site pain [Recovered/Resolved]
  - Wrong technique in device usage process [Unknown]
  - Device occlusion [Unknown]
  - Product quality issue [Unknown]

NARRATIVE: CASE EVENT DATE: 20170811
